FAERS Safety Report 20570163 (Version 3)
Quarter: 2022Q1

REPORT INFORMATION
  Report Type: Spontaneous
  Country: US (occurrence: US)
  Receive Date: 20220309
  Receipt Date: 20220324
  Transmission Date: 20220424
  Serious: Yes (Other)
  Sender: FDA-Public Use
  Company Number: US-009507513-2203USA001375

PATIENT
  Age: 68 Year
  Sex: Male
  Weight: 91.6 kg

DRUGS (13)
  1. KEYTRUDA [Suspect]
     Active Substance: PEMBROLIZUMAB
     Indication: Colon cancer
     Dosage: 200 MILLIGRAM
     Route: 042
     Dates: start: 20210804, end: 20220224
  2. KEYTRUDA [Suspect]
     Active Substance: PEMBROLIZUMAB
     Indication: Lung adenocarcinoma
  3. ALIMTA [Suspect]
     Active Substance: PEMETREXED DISODIUM
     Indication: Lung adenocarcinoma
     Dosage: 500 MILLIGRAM/SQ. METER, Q21 DAYS
  4. CARBOPLATIN [Suspect]
     Active Substance: CARBOPLATIN
     Indication: Lung adenocarcinoma
     Dosage: UNK
  5. IMODIUM [Concomitant]
     Active Substance: LOPERAMIDE HYDROCHLORIDE
     Dosage: UNK, AS NEEDED
     Route: 048
  6. MIRTAZAPINE [Concomitant]
     Active Substance: MIRTAZAPINE
     Dosage: 1 TABLET ORAL DALLY BEFORE SLEEP 7.5 MG
     Route: 048
  7. LIDODERM [Concomitant]
     Active Substance: LIDOCAINE
     Dosage: 1 PATCH TOPICAL DAILY
     Route: 061
  8. OXYCODONE [Concomitant]
     Active Substance: OXYCODONE
     Indication: Cancer pain
     Dosage: 1-2 TABLET EVERY 4 HOURS AS NEEDED
  9. CLEMASTINE FUMARATE;PHENYLPROPANOLAMINE HYDROCHLORIDE [Concomitant]
     Dosage: UNK, DAILY
     Route: 048
  10. COMPAZINE [Concomitant]
     Active Substance: PROCHLORPERAZINE MALEATE
     Dosage: 1-2 TABLET EVERY 6 HOURS
     Route: 048
  11. FOLIC ACID [Concomitant]
     Active Substance: FOLIC ACID
     Dosage: 1 TABLET DAILY
     Route: 048
  12. FLONASE [Concomitant]
     Active Substance: FLUTICASONE PROPIONATE
     Dosage: 1 SPRAY NASAL TWICE DAILY
     Route: 045
  13. LORAZEPAM [Concomitant]
     Active Substance: LORAZEPAM
     Dosage: UNK, TWICE DAILY PRN
     Route: 048

REACTIONS (39)
  - Acute kidney injury [Unknown]
  - Malignant neoplasm progression [Unknown]
  - Secondary hypothyroidism [Unknown]
  - Deep vein thrombosis [Unknown]
  - Urinary retention [Unknown]
  - Rhinorrhoea [Unknown]
  - Lacrimation increased [Unknown]
  - Dyspnoea exertional [Unknown]
  - Urinary hesitation [Unknown]
  - Cognitive disorder [Unknown]
  - Mean cell volume increased [Unknown]
  - Mean cell haemoglobin increased [Unknown]
  - Mean cell haemoglobin increased [Unknown]
  - Red cell distribution width increased [Unknown]
  - Anion gap increased [Unknown]
  - Blood glucose decreased [Unknown]
  - Blood urea increased [Unknown]
  - Alanine aminotransferase decreased [Unknown]
  - Globulins increased [Unknown]
  - Globulins increased [Unknown]
  - Hypogeusia [Unknown]
  - Haemoglobin decreased [Unknown]
  - Haemoglobin decreased [Unknown]
  - Haematocrit decreased [Unknown]
  - Haematocrit decreased [Unknown]
  - Red blood cell count decreased [Unknown]
  - Red blood cell count decreased [Unknown]
  - Blood glucose increased [Unknown]
  - Glomerular filtration rate decreased [Unknown]
  - Glomerular filtration rate decreased [Unknown]
  - Weight decreased [Unknown]
  - Blood creatinine increased [Unknown]
  - Blood creatinine increased [Unknown]
  - Fatigue [Unknown]
  - Decreased appetite [Unknown]
  - Dyspnoea [Unknown]
  - Abdominal pain [Unknown]
  - Diarrhoea [Unknown]
  - Cough [Unknown]

NARRATIVE: CASE EVENT DATE: 20211001
